FAERS Safety Report 4356539-0 (Version None)
Quarter: 2004Q2

REPORT INFORMATION
  Report Type: 
  Country: None (occurrence: None)
  Receive Date: 20040507
  Receipt Date: 20040503
  Transmission Date: 20050107
  Serious: Yes (Death, Other)
  Sender: FDA-Public Use
  Company Number: 200412000BCC

PATIENT
  Age: 10 Month
  Sex: Male
  Weight: 9.5255 kg

DRUGS (1)
  1. ALEVE [Suspect]
     Dosage: ORAL
     Route: 048

REACTIONS (5)
  - ACCIDENT [None]
  - ACCIDENTAL EXPOSURE [None]
  - CHOKING [None]
  - DRUG LEVEL INCREASED [None]
  - INJURY ASPHYXIATION [None]
